FAERS Safety Report 9830738 (Version 2)
Quarter: 2014Q1

REPORT INFORMATION
  Report Type: Spontaneous
  Country: US (occurrence: US)
  Receive Date: 20140120
  Receipt Date: 20140304
  Transmission Date: 20141002
  Serious: No
  Sender: FDA-Public Use
  Company Number: US-009507513-1401USA008523

PATIENT
  Age: 65 Year
  Sex: Female
  Weight: 63.49 kg

DRUGS (2)
  1. OXYTROL FOR WOMEN [Suspect]
     Indication: HYPERTONIC BLADDER
     Dosage: 1 DF, Q4D
     Route: 062
     Dates: start: 201311, end: 201312
  2. PREDNISONE [Concomitant]
     Indication: MYALGIA
     Dosage: 2 MG, QD

REACTIONS (4)
  - Burning sensation [Unknown]
  - Erythema [Recovered/Resolved]
  - Pruritus [Unknown]
  - Rash [Recovered/Resolved]
